FAERS Safety Report 16526126 (Version 1)
Quarter: 2019Q3

REPORT INFORMATION
  Report Type: Spontaneous
  Country: US (occurrence: US)
  Receive Date: 20190703
  Receipt Date: 20190703
  Transmission Date: 20191004
  Serious: No
  Sender: FDA-Public Use
  Company Number: US-CELGENEUS-USA-20190610352

PATIENT
  Sex: Male

DRUGS (2)
  1. IDHIFA [Suspect]
     Active Substance: ENASIDENIB MESYLATE
     Indication: PLASMA CELL MYELOMA
     Dosage: 100 MILLIGRAM
     Route: 048
     Dates: start: 20180206
  2. IDHIFA [Suspect]
     Active Substance: ENASIDENIB MESYLATE
     Indication: OFF LABEL USE

REACTIONS (1)
  - Pruritus [Not Recovered/Not Resolved]
